FAERS Safety Report 7365655-0 (Version None)
Quarter: 2011Q1

REPORT INFORMATION
  Report Type: 
  Country: None (occurrence: None)
  Receive Date: 20110322
  Receipt Date: 20100909
  Transmission Date: 20110831
  Serious: Yes (Hospitalization, Other)
  Sender: FDA-Public Use
  Company Number: US-BAYER-201018617NA

PATIENT
  Sex: Female
  Weight: 58.957 kg

DRUGS (17)
  1. CARISOPRODOL [Concomitant]
  2. AMOXICILLIN [Concomitant]
  3. NAPROXEN [Concomitant]
  4. PENICILLIN [Concomitant]
  5. UNCODEABLE ^UNCLASSIFIABLE^ [Concomitant]
  6. ALBUTEROL [Concomitant]
  7. PREDNISONE [Concomitant]
  8. PROMETHAZINE [Concomitant]
  9. NABUMETONE [Concomitant]
  10. CIPROFLOXACIN [Concomitant]
  11. SKELAXIN [Concomitant]
  12. YASMIN [Suspect]
     Indication: PRODUCT USED FOR UNKNOWN INDICATION
     Dosage: UNK UNK, UNK
     Route: 048
     Dates: start: 20070301, end: 20070801
  13. HYDROCODONE BITARTRATE [Concomitant]
  14. NITROFURANT MACRO [Concomitant]
  15. XOPENEX [Concomitant]
     Dosage: UNK
     Dates: start: 19970101, end: 20000101
  16. EXCEDRIN (MIGRAINE) [Concomitant]
     Indication: HEADACHE
     Dosage: UNK UNK, OW
     Dates: start: 20060101, end: 20070101
  17. PROCHLORPERAZINE [Concomitant]

REACTIONS (6)
  - ABDOMINAL PAIN [None]
  - COAGULOPATHY [None]
  - GALLBLADDER DISORDER [None]
  - PAIN [None]
  - APPENDICITIS [None]
  - CHOLECYSTITIS CHRONIC [None]
